FAERS Safety Report 25432011 (Version 1)
Quarter: 2025Q2

REPORT INFORMATION
  Report Type: Spontaneous
  Country: FR (occurrence: FR)
  Receive Date: 20250613
  Receipt Date: 20250613
  Transmission Date: 20250717
  Serious: Yes (Other)
  Sender: SANOFI AVENTIS
  Company Number: FR-SANOFI-02413640

PATIENT
  Age: 14 Year
  Sex: Male

DRUGS (1)
  1. CEREZYME [Suspect]
     Active Substance: IMIGLUCERASE
     Indication: Gaucher^s disease
     Route: 065

REACTIONS (5)
  - Growth failure [Unknown]
  - Anxiety [Unknown]
  - Gaucher^s disease [Unknown]
  - Condition aggravated [Unknown]
  - Fatigue [Unknown]
